FAERS Safety Report 9326059 (Version 1)
Quarter: 2013Q2

REPORT INFORMATION
  Report Type: Spontaneous
  Country: DK (occurrence: DK)
  Receive Date: 20130604
  Receipt Date: 20130604
  Transmission Date: 20140414
  Serious: Yes (Death, Other)
  Sender: FDA-Public Use
  Company Number: DK-ASTRAZENECA-2013SE38793

PATIENT
  Sex: Male

DRUGS (17)
  1. SEROQUEL [Suspect]
     Dosage: UNKNOWN, AS REQUIRED
     Route: 048
  2. SEROQUEL [Suspect]
     Route: 048
  3. CISORDINOL-ACUTARD [Concomitant]
  4. ZELDOX [Concomitant]
  5. RISPERDAL CONSTA JANSSEN-CILAG [Concomitant]
  6. RISPERDAL CONSTA JANSSEN-CILAG [Concomitant]
  7. ANTABUS [Concomitant]
  8. TOPAMAX [Concomitant]
  9. SERTRALIN RANBAXY [Concomitant]
  10. LYSANTIN [Concomitant]
  11. IBUMETIN [Concomitant]
  12. PINEX [Concomitant]
  13. ALOPAM [Concomitant]
     Dosage: 20-24 TABLETS PER DAY
  14. RITALIN [Concomitant]
     Dosage: AS REQUIRED
  15. TRUXAL [Concomitant]
     Dosage: 50-75 MG FOUR TIMES A DAY AND AS REQUIRED
  16. NOZINAN [Concomitant]
     Dosage: AS REQUIRED
  17. IMOCLONE [Concomitant]

REACTIONS (28)
  - Cardiac arrest [Fatal]
  - Cardiac disorder [Unknown]
  - Respiratory distress [Unknown]
  - Arrhythmia [Unknown]
  - Hepatic function abnormal [Unknown]
  - Psychotic disorder [Unknown]
  - Chest pain [Unknown]
  - Thrombosis [Unknown]
  - Intestinal perforation [Unknown]
  - Hepatitis [Unknown]
  - Renal impairment [Unknown]
  - Palpitations [Unknown]
  - White blood cell count decreased [Unknown]
  - Platelet count decreased [Unknown]
  - Anaemia [Unknown]
  - Adverse event [Unknown]
  - Depression [Unknown]
  - Aggression [Unknown]
  - Hypertension [Unknown]
  - Nervousness [Unknown]
  - Dependence [Unknown]
  - Respiratory depression [Unknown]
  - Weight increased [Unknown]
  - Blood pressure decreased [Unknown]
  - Hypotension [Unknown]
  - Dizziness [Unknown]
  - Vision blurred [Unknown]
  - Dyspnoea [Unknown]
